FAERS Safety Report 5936927-9 (Version None)
Quarter: 2008Q4

REPORT INFORMATION
  Report Type: 
  Country: None (occurrence: None)
  Receive Date: 20081031
  Receipt Date: 20081027
  Transmission Date: 20090506
  Serious: Yes (Other)
  Sender: FDA-Public Use
  Company Number: US-BAYER-200831603NA

PATIENT
  Age: 38 Year
  Sex: Female
  Weight: 88 kg

DRUGS (3)
  1. MIRENA [Suspect]
     Indication: DRUG USE FOR UNKNOWN INDICATION
     Route: 015
     Dates: start: 20080717
  2. AYGESTIN [Concomitant]
     Indication: VAGINAL HAEMORRHAGE
  3. DARVOCET [Concomitant]
     Indication: PELVIC PAIN

REACTIONS (3)
  - IUD MIGRATION [None]
  - POST PROCEDURAL HAEMORRHAGE [None]
  - PROCEDURAL PAIN [None]
